FAERS Safety Report 18313820 (Version 1)
Quarter: 2020Q3

REPORT INFORMATION
  Report Type: Spontaneous
  Country: US (occurrence: US)
  Receive Date: 20200925
  Receipt Date: 20200925
  Transmission Date: 20201103
  Serious: Yes (Hospitalization)
  Sender: FDA-Public Use
  Company Number: US-JNJFOC-20200932157

PATIENT
  Age: 71 Year
  Sex: Male
  Weight: 140 kg

DRUGS (1)
  1. INVOKANA [Suspect]
     Active Substance: CANAGLIFLOZIN
     Indication: DIABETES MELLITUS
     Route: 048
     Dates: start: 2014, end: 2018

REACTIONS (3)
  - Diabetic foot infection [Unknown]
  - Osteomyelitis [Unknown]
  - Leg amputation [Unknown]

NARRATIVE: CASE EVENT DATE: 201705
